FAERS Safety Report 25020965 (Version 1)
Quarter: 2025Q1

REPORT INFORMATION
  Report Type: Spontaneous
  Country: FR (occurrence: FR)
  Receive Date: 20250227
  Receipt Date: 20250227
  Transmission Date: 20250409
  Serious: Yes (Other)
  Sender: AMGEN
  Company Number: None

PATIENT
  Age: 72 Year
  Sex: Female
  Weight: 79 kg

DRUGS (1)
  1. PROLIA [Suspect]
     Active Substance: DENOSUMAB
     Indication: Osteopenia
     Route: 058
     Dates: start: 20240409

REACTIONS (3)
  - Polymyalgia rheumatica [Recovering/Resolving]
  - Arthralgia [Recovering/Resolving]
  - Off label use [Unknown]

NARRATIVE: CASE EVENT DATE: 20240423
